FAERS Safety Report 5990853-8 (Version None)
Quarter: 2008Q4

REPORT INFORMATION
  Report Type: 
  Country: None (occurrence: None)
  Receive Date: 20081211
  Receipt Date: 20081204
  Transmission Date: 20090506
  Serious: Yes (Other)
  Sender: FDA-Public Use
  Company Number: JP-ASTRAZENECA-2008AP09436

PATIENT
  Age: 66 Year
  Sex: Male

DRUGS (5)
  1. DIPRIVAN [Suspect]
     Indication: INDUCTION OF ANAESTHESIA
     Dosage: DOSE UNKNOWN
     Route: 042
  2. FENTANYL CITRATE [Concomitant]
     Indication: INDUCTION OF ANAESTHESIA
     Dosage: DOSE UNKNOWN
     Route: 042
  3. VECURONIUM BROMIDE [Concomitant]
     Indication: INDUCTION OF ANAESTHESIA
     Dosage: DOSE UNKNOWN
     Route: 042
  4. OXYGEN [Concomitant]
     Indication: MAINTENANCE OF ANAESTHESIA
     Dosage: DOSE UNKNOWN
     Route: 055
  5. SEVOFLURANE [Concomitant]
     Indication: MAINTENANCE OF ANAESTHESIA
     Dosage: DOSE UNKNOWN
     Route: 055

REACTIONS (3)
  - ARTERIOSPASM CORONARY [None]
  - BLOOD PRESSURE DECREASED [None]
  - ELECTROCARDIOGRAM ST SEGMENT ELEVATION [None]
